FAERS Safety Report 4277506-1 (Version None)
Quarter: 2004Q1

REPORT INFORMATION
  Report Type: 
  Country: None (occurrence: None)
  Receive Date: 20040122
  Receipt Date: 20040112
  Transmission Date: 20041129
  Serious: Yes (Hospitalization, Other)
  Sender: FDA-Public Use
  Company Number: PHBS2004CH00714

PATIENT
  Age: 17 Year
  Sex: Female

DRUGS (6)
  1. LEPONEX [Suspect]
     Dosage: 100 MG/D
     Route: 065
     Dates: start: 20031208
  2. LEPONEX [Suspect]
     Dosage: 300 MG/D
     Route: 065
  3. FLUCTINE [Suspect]
     Dosage: 20 MG/D
     Route: 065
     Dates: start: 20031219, end: 20040107
  4. AKINETON [Suspect]
     Dosage: 2 MG/D
     Route: 065
     Dates: start: 20031209, end: 20031215
  5. AKINETON [Suspect]
     Dosage: 6 MG/D
     Route: 065
     Dates: start: 20031216
  6. AKINETON [Suspect]
     Dosage: 30 MG/D
     Route: 065
     Dates: start: 20040108

REACTIONS (19)
  - ABDOMINAL PAIN [None]
  - ASTHENIA [None]
  - BLOOD PRESSURE ORTHOSTATIC ABNORMAL [None]
  - BODY TEMPERATURE INCREASED [None]
  - DIVERTICULITIS [None]
  - DIZZINESS [None]
  - ENTERITIS [None]
  - FATIGUE [None]
  - INDURATION [None]
  - INFLAMMATION [None]
  - MUSCLE RIGIDITY [None]
  - ORTHOSTATIC HYPOTENSION [None]
  - PHARYNGOLARYNGEAL PAIN [None]
  - POSTURE ABNORMAL [None]
  - SOMNOLENCE [None]
  - TACHYCARDIA [None]
  - TONGUE DISCOLOURATION [None]
  - TOXIC DILATATION OF COLON [None]
  - VOMITING [None]
